FAERS Safety Report 8383553-0 (Version None)
Quarter: 2012Q2

REPORT INFORMATION
  Report Type: 
  Country: None (occurrence: None)
  Receive Date: 20120524
  Receipt Date: 20120518
  Transmission Date: 20120825
  Serious: Yes (Hospitalization)
  Sender: FDA-Public Use
  Company Number: CA-AMGEN-CANSP2012021136

PATIENT
  Age: 77 Year
  Sex: Female
  Weight: 68.027 kg

DRUGS (2)
  1. PROLIA [Suspect]
     Indication: OSTEOPOROSIS
     Dosage: 60 MG, ONE TIME DOSE
     Route: 058
     Dates: start: 20120319
  2. PROLIA [Suspect]
     Dosage: 60 MG, QD
     Route: 058
     Dates: start: 20120501

REACTIONS (5)
  - DIZZINESS [None]
  - ABDOMINAL DISCOMFORT [None]
  - UROSEPSIS [None]
  - CALCULUS URINARY [None]
  - HEADACHE [None]
